FAERS Safety Report 6099218-4 (Version None)
Quarter: 2009Q1

REPORT INFORMATION
  Report Type: 
  Country: None (occurrence: None)
  Receive Date: 20090225
  Receipt Date: 20090225
  Transmission Date: 20090719
  Serious: Yes (Other)
  Sender: FDA-Public Use
  Company Number: None

PATIENT
  Age: 9 Year
  Sex: Male
  Weight: 29.0302 kg

DRUGS (2)
  1. KEPPRA [Suspect]
     Indication: CONVULSION
     Dosage: 1.5 TABLETS BY MOUTH TWICE DAILY PO
     Route: 048
     Dates: start: 20081008, end: 20081201
  2. KEPPRA [Suspect]
     Indication: MIGRAINE
     Dosage: 1.5 TABLETS BY MOUTH TWICE DAILY PO
     Route: 048
     Dates: start: 20081008, end: 20081201

REACTIONS (4)
  - ABNORMAL BEHAVIOUR [None]
  - FATIGUE [None]
  - HYPERSOMNIA [None]
  - REGRESSIVE BEHAVIOUR [None]
